FAERS Safety Report 11705376 (Version 12)
Quarter: 2016Q4

REPORT INFORMATION
  Report Type: Report from Study
  Country: IL (occurrence: IL)
  Receive Date: 20151106
  Receipt Date: 20161220
  Transmission Date: 20170206
  Serious: Yes (Hospitalization)
  Sender: FDA-Public Use
  Company Number: PHHY2015IL144922

PATIENT
  Age: 48 Year
  Sex: Female

DRUGS (2)
  1. SATIVEX [Concomitant]
     Active Substance: NABIXIMOLS
     Indication: PRODUCT USED FOR UNKNOWN INDICATION
     Dosage: UNK
     Route: 065
     Dates: start: 20160715, end: 20160719
  2. GILENYA [Suspect]
     Active Substance: FINGOLIMOD HYDROCHLORIDE
     Indication: MULTIPLE SCLEROSIS
     Dosage: 0.5 MG, QD
     Route: 048
     Dates: start: 20141208

REACTIONS (13)
  - Asthenia [Not Recovered/Not Resolved]
  - Balance disorder [Recovering/Resolving]
  - Skin sensitisation [Not Recovered/Not Resolved]
  - Limb discomfort [Not Recovered/Not Resolved]
  - Constipation [Not Recovered/Not Resolved]
  - Facial pain [Recovering/Resolving]
  - Humerus fracture [Recovering/Resolving]
  - Urinary incontinence [Not Recovered/Not Resolved]
  - Urinary incontinence [Recovered/Resolved]
  - Fall [Unknown]
  - Anal incontinence [Recovered/Resolved]
  - Pain in extremity [Recovering/Resolving]
  - Contusion [Unknown]

NARRATIVE: CASE EVENT DATE: 20151102
